FAERS Safety Report 5221838-7 (Version None)
Quarter: 2007Q1

REPORT INFORMATION
  Report Type: 
  Country: None (occurrence: None)
  Receive Date: 20070126
  Receipt Date: 20070126
  Transmission Date: 20070707
  Serious: Yes (Life-Threatening, Hospitalization)
  Sender: FDA-Public Use
  Company Number: None

PATIENT
  Age: 60 Year
  Sex: Female
  Weight: 60 kg

DRUGS (1)
  1. RAMIPRIL [Suspect]
     Indication: HYPERTENSION
     Dosage: 10 MG DAILY PO
     Route: 048
     Dates: start: 20060701, end: 20070116

REACTIONS (6)
  - ANGIOEDEMA [None]
  - DYSPHONIA [None]
  - INFECTION [None]
  - NASOPHARYNGEAL DISORDER [None]
  - SECRETION DISCHARGE [None]
  - SPEECH DISORDER [None]
